FAERS Safety Report 12818671 (Version 6)
Quarter: 2019Q1

REPORT INFORMATION
  Report Type: Report from Study
  Country: CO (occurrence: CO)
  Receive Date: 20161006
  Receipt Date: 20190227
  Transmission Date: 20190417
  Serious: Yes (Hospitalization, Other)
  Sender: FDA-Public Use
  Company Number: PHHY2015CO157486

PATIENT
  Age: 54 Year
  Sex: Female
  Weight: 67 kg

DRUGS (8)
  1. PLATELETS [Concomitant]
     Active Substance: HUMAN PLATELET, ALLOGENIC
     Indication: PRODUCT USED FOR UNKNOWN INDICATION
     Route: 065
  2. EXJADE [Suspect]
     Active Substance: DEFERASIROX
     Indication: THALASSAEMIA
     Dosage: 500 MG, QD
     Route: 048
     Dates: start: 20150710, end: 20150926
  3. EXJADE [Suspect]
     Active Substance: DEFERASIROX
     Dosage: 500 MG, TID
     Route: 048
  4. RED BLOOD CELLS [Concomitant]
     Active Substance: HUMAN RED BLOOD CELL
     Indication: PRODUCT USED FOR UNKNOWN INDICATION
     Route: 065
  5. EUTIROX [Concomitant]
     Active Substance: LEVOTHYROXINE SODIUM
     Indication: THYROID DISORDER
     Route: 065
  6. ENALAPRIL [Concomitant]
     Active Substance: ENALAPRIL
     Indication: HYPERTENSION
     Route: 065
  7. EXJADE [Suspect]
     Active Substance: DEFERASIROX
     Dosage: 1000 MG, QD
     Route: 048
  8. TRAZODONE [Concomitant]
     Active Substance: TRAZODONE HYDROCHLORIDE
     Indication: SLEEP DISORDER
     Dosage: UNK, QD (1 DAILY AVERAGE)
     Route: 065

REACTIONS (21)
  - Appendicitis [Unknown]
  - Blood sodium decreased [Unknown]
  - Malaise [Unknown]
  - Dizziness [Unknown]
  - Inappropriate schedule of product administration [Unknown]
  - Platelet disorder [Unknown]
  - Pain [Unknown]
  - Post procedural diarrhoea [Recovered/Resolved]
  - Decreased immune responsiveness [Unknown]
  - Choking [Unknown]
  - Vomiting [Recovered/Resolved]
  - Eating disorder [Unknown]
  - Platelet count decreased [Unknown]
  - Gait disturbance [Unknown]
  - Haemoglobin abnormal [Unknown]
  - Irritable bowel syndrome [Unknown]
  - Gastritis [Unknown]
  - Cholelithiasis [Unknown]
  - Fatigue [Unknown]
  - Depression [Unknown]
  - White blood cell count decreased [Unknown]

NARRATIVE: CASE EVENT DATE: 20170218
